FAERS Safety Report 15678143 (Version 1)
Quarter: 2018Q4

REPORT INFORMATION
  Report Type: Spontaneous
  Country: US (occurrence: US)
  Receive Date: 20181201
  Receipt Date: 20181201
  Transmission Date: 20190205
  Serious: Yes (Death, Hospitalization, Other)
  Sender: FDA-Public Use
  Company Number: US-AUROBINDO-AUR-APL-2018-057413

PATIENT
  Age: 55 Year
  Sex: Female

DRUGS (2)
  1. INFLIXIMAB [Suspect]
     Active Substance: INFLIXIMAB
     Indication: NEUROSARCOIDOSIS
     Dosage: 5 MILLIGRAM/KILOGRAM MONTHLY FOR A TOTAL OF THREE DOSES
     Route: 042
  2. DEXAMETHASONE. [Suspect]
     Active Substance: DEXAMETHASONE
     Indication: NEUROSARCOIDOSIS
     Dosage: 8 MILLIGRAM, DAILY
     Route: 065

REACTIONS (8)
  - Cognitive disorder [Unknown]
  - Disorientation [Unknown]
  - Central nervous system lesion [Unknown]
  - Disturbance in attention [Unknown]
  - Aspergillus infection [Fatal]
  - Gait disturbance [Unknown]
  - Immunosuppression [Unknown]
  - Muscular weakness [Unknown]
